FAERS Safety Report 6916628-0 (Version None)
Quarter: 2010Q3

REPORT INFORMATION
  Report Type: 
  Country: None (occurrence: None)
  Receive Date: 20100810
  Receipt Date: 20100803
  Transmission Date: 20110219
  Serious: Yes (Death)
  Sender: FDA-Public Use
  Company Number: GB-ROCHE-700553

PATIENT
  Age: 8 Year
  Sex: Female
  Weight: 29.3 kg

DRUGS (10)
  1. ZENAPAX [Suspect]
     Indication: PRODUCT USED FOR UNKNOWN INDICATION
     Route: 065
     Dates: start: 20090303
  2. ZENAPAX [Suspect]
     Dosage: DACLIZUMAB : GIVEN ON D1 AND D4 1 MG/ KG IN 50 ML 0.9 % SALINE OVER 15 MINUTES 3 DOSES.
     Route: 065
     Dates: start: 20090307
  3. MYCOPHENOLATE MOFETIL [Suspect]
     Indication: LIVER TRANSPLANT REJECTION
     Route: 065
     Dates: start: 20090305, end: 20090310
  4. TACROLIMUS [Concomitant]
  5. VANCOMYCIN [Concomitant]
  6. MEROPENEM [Concomitant]
  7. AMBISOME [Concomitant]
     Dosage: DRUG REPORTED: AMBISONE
  8. ACYCLOVIR [Concomitant]
  9. NYSTATIN [Concomitant]
  10. HYDROCORTISONE [Concomitant]
     Route: 042
     Dates: start: 20090305, end: 20090310

REACTIONS (2)
  - ARGININOSUCCINATE SYNTHETASE DEFICIENCY [None]
  - GRAFT DYSFUNCTION [None]
